FAERS Safety Report 18047287 (Version 2)
Quarter: 2020Q4

REPORT INFORMATION
  Report Type: Spontaneous
  Country: FR (occurrence: FR)
  Receive Date: 20200721
  Receipt Date: 20201022
  Transmission Date: 20210113
  Serious: Yes (Hospitalization)
  Sender: FDA-Public Use
  Company Number: FR-ACCORD-190822

PATIENT
  Age: 53 Year
  Sex: Male
  Weight: 80 kg

DRUGS (16)
  1. LURBINECTEDIN [Suspect]
     Active Substance: LURBINECTEDIN
     Indication: LUNG NEOPLASM MALIGNANT
     Dosage: 3.2 MG / M2 I.E. 6.4 MG
     Route: 042
     Dates: start: 20200427, end: 20200615
  2. NICOPATCH [Concomitant]
     Active Substance: NICOTINE
     Indication: EX-TOBACCO USER
     Dosage: 21 MG / 24 HOURS, 1 / DAY
     Route: 003
  3. IMOVANE [Concomitant]
     Active Substance: ZOPICLONE
     Indication: PRODUCT USED FOR UNKNOWN INDICATION
     Dosage: 7.5 MG SCORED FILM-COATED TABLET, AT BEDTIME
     Route: 048
  4. PREDNISONE. [Concomitant]
     Active Substance: PREDNISONE
     Indication: PRODUCT USED FOR UNKNOWN INDICATION
     Route: 048
  5. BRICANYL [Concomitant]
     Active Substance: TERBUTALINE SULFATE
     Indication: PRODUCT USED FOR UNKNOWN INDICATION
     Dosage: 5 MG IF NEEDED
     Route: 055
  6. FUROSEMIDE. [Suspect]
     Active Substance: FUROSEMIDE
     Indication: GENERALISED OEDEMA
     Dosage: IN THE MORNING
     Route: 048
     Dates: start: 20200611, end: 20200615
  7. ATROVENT [Concomitant]
     Active Substance: IPRATROPIUM BROMIDE
     Indication: PRODUCT USED FOR UNKNOWN INDICATION
     Dosage: 0.5 MG IF NEEDED
     Route: 055
  8. TOUJEO [Concomitant]
     Active Substance: INSULIN GLARGINE
     Indication: TYPE 2 DIABETES MELLITUS
     Dosage: IN THE EVENING
     Route: 058
  9. KENZEN [Suspect]
     Active Substance: CANDESARTAN CILEXETIL
     Indication: HYPERTENSION
     Dosage: IN THE MORNING
     Route: 048
  10. ESIDREX [Suspect]
     Active Substance: HYDROCHLOROTHIAZIDE
     Indication: HYPERTENSION
     Dosage: IN THE MORNING
     Route: 048
  11. IMODIUM [Concomitant]
     Active Substance: LOPERAMIDE HYDROCHLORIDE
     Indication: PRODUCT USED FOR UNKNOWN INDICATION
     Dosage: 2 MG IF NEEDED
     Route: 048
  12. HUMALOG [Concomitant]
     Active Substance: INSULIN LISPRO
     Indication: TYPE 2 DIABETES MELLITUS
     Dosage: PROTOCOL ACCORDING TO MEAL
     Route: 058
  13. PREGABALIN. [Suspect]
     Active Substance: PREGABALIN
     Indication: NEURALGIA
     Dosage: 25 MG MORNING, NOON AND EVENING
     Route: 048
  14. STAGID [Concomitant]
     Active Substance: METFORMIN PAMOATE
     Indication: TYPE 2 DIABETES MELLITUS
     Dosage: 700 MG MORNING, NOON AND EVENING
     Route: 048
  15. OXYNORM [Concomitant]
     Active Substance: OXYCODONE HYDROCHLORIDE
     Indication: CANCER PAIN
     Dosage: STRENGTH: 10 MG
     Route: 048
     Dates: start: 2019
  16. OXYCONTIN [Concomitant]
     Active Substance: OXYCODONE HYDROCHLORIDE
     Indication: CANCER PAIN
     Dosage: 20 MG MORNING AND EVENING
     Route: 048
     Dates: start: 2019

REACTIONS (1)
  - Acute kidney injury [Not Recovered/Not Resolved]

NARRATIVE: CASE EVENT DATE: 20200615
